FAERS Safety Report 9052057 (Version 1)
Quarter: 2013Q1

REPORT INFORMATION
  Report Type: Spontaneous
  Country: US (occurrence: US)
  Receive Date: 20130207
  Receipt Date: 20130207
  Transmission Date: 20140127
  Serious: Yes (Life-Threatening, Hospitalization, Disabling)
  Sender: FDA-Public Use
  Company Number: US-BAYER-2012-108645

PATIENT
  Age: 28 Year
  Sex: Female
  Weight: 70 kg

DRUGS (3)
  1. MIRENA [Suspect]
     Indication: CONTRACEPTION
     Dosage: 20 MCG/24HR, CONT
     Route: 015
     Dates: start: 20111222, end: 20120325
  2. MIRENA [Suspect]
     Indication: CYST
  3. MIRENA [Suspect]
     Indication: MENORRHAGIA

REACTIONS (4)
  - Hypomenorrhoea [None]
  - Abasia [None]
  - Dysstasia [None]
  - Menorrhagia [Recovered/Resolved]
